FAERS Safety Report 26093592 (Version 2)
Quarter: 2025Q4

REPORT INFORMATION
  Report Type: Spontaneous
  Country: EU (occurrence: EU)
  Receive Date: 20251126
  Receipt Date: 20251217
  Transmission Date: 20260119
  Serious: Yes (Hospitalization)
  Sender: JOHNSON AND JOHNSON
  Company Number: EU-JNJFOC-20251167345

PATIENT
  Sex: Male
  Weight: 78.00 kg

DRUGS (21)
  1. YONDELIS [Suspect]
     Active Substance: TRABECTEDIN
     Indication: Leiomyosarcoma metastatic
     Dosage: CYCLE 1, DAY 1
  2. YONDELIS [Suspect]
     Active Substance: TRABECTEDIN
     Dosage: CYCLE 2
  3. YONDELIS [Suspect]
     Active Substance: TRABECTEDIN
     Dosage: CYCLE 3
  4. YONDELIS [Suspect]
     Active Substance: TRABECTEDIN
     Dosage: CYCLE 4
  5. YONDELIS [Suspect]
     Active Substance: TRABECTEDIN
     Dosage: CYCLE 5
  6. YONDELIS [Suspect]
     Active Substance: TRABECTEDIN
     Dosage: CYCLE 6
  7. YONDELIS [Suspect]
     Active Substance: TRABECTEDIN
     Dosage: CYCLE 7
  8. YONDELIS [Suspect]
     Active Substance: TRABECTEDIN
     Dosage: CYCLE 8
  9. YONDELIS [Suspect]
     Active Substance: TRABECTEDIN
     Dosage: CYCLE 9
  10. YONDELIS [Suspect]
     Active Substance: TRABECTEDIN
     Dosage: CYCLE 10
  11. VITAMIN D3 [Concomitant]
     Active Substance: CHOLECALCIFEROL
     Indication: Product used for unknown indication
  12. VITAMIN E BIOAKTIV KOMPLEX [Concomitant]
     Indication: Product used for unknown indication
  13. SELENASE [SELENIDE SODIUM] [Concomitant]
     Indication: Product used for unknown indication
  14. KARAZYM [Concomitant]
     Indication: Product used for unknown indication
  15. CURCUMIN\DIETARY SUPPLEMENT [Concomitant]
     Active Substance: CURCUMIN\DIETARY SUPPLEMENT
     Indication: Product used for unknown indication
  16. MISTEL [VISCUM ALBUM] [Concomitant]
     Indication: Product used for unknown indication
  17. ESOMEPRAZOLE [Concomitant]
     Active Substance: ESOMEPRAZOLE
     Indication: Product used for unknown indication
  18. DIHYDROCODEINE BITARTRATE [Concomitant]
     Active Substance: DIHYDROCODEINE BITARTRATE
     Indication: Product used for unknown indication
  19. DEXAMETHASONE ISONICOTINATE [Concomitant]
     Active Substance: DEXAMETHASONE ISONICOTINATE
     Indication: Product used for unknown indication
  20. FILGRASTIM [Concomitant]
     Active Substance: FILGRASTIM
     Indication: Product used for unknown indication
     Route: 058
  21. MOXIFLOXACIN [Concomitant]
     Active Substance: MOXIFLOXACIN
     Indication: Product used for unknown indication
     Dates: start: 20250917, end: 20250923

REACTIONS (1)
  - Pancytopenia [Recovered/Resolved]

NARRATIVE: CASE EVENT DATE: 20250930
